FAERS Safety Report 5370590-3 (Version None)
Quarter: 2007Q2

REPORT INFORMATION
  Report Type: 
  Country: None (occurrence: None)
  Receive Date: 20070622
  Receipt Date: 20070614
  Transmission Date: 20071010
  Serious: Yes (Other)
  Sender: FDA-Public Use
  Company Number: GXKR2007ES05116

PATIENT
  Sex: Female

DRUGS (8)
  1. CIPROFLOXACIN [Suspect]
     Dosage: ORAL
     Route: 048
     Dates: start: 20070101
  2. SANDIMMUNE [Concomitant]
  3. FUROSEMIDE [Concomitant]
  4. ATORVASTATIN CALCIUM [Concomitant]
  5. AMLODIPINE BESYLATE [Concomitant]
  6. RANITIDINE [Concomitant]
  7. INSULIN (INSULIN) [Concomitant]
  8. CELFET [Concomitant]

REACTIONS (3)
  - ABDOMINAL PAIN [None]
  - BURN OESOPHAGEAL [None]
  - NAUSEA [None]
